FAERS Safety Report 8334363-1 (Version None)
Quarter: 2012Q2

REPORT INFORMATION
  Report Type: 
  Country: None (occurrence: None)
  Receive Date: 20120503
  Receipt Date: 20120424
  Transmission Date: 20120825
  Serious: Yes (Other)
  Sender: FDA-Public Use
  Company Number: BR-ABBOTT-11P-020-0862059-00

PATIENT
  Sex: Female
  Weight: 65 kg

DRUGS (5)
  1. ENDOFOLIN [Concomitant]
     Indication: ANAEMIA
  2. HUMIRA [Suspect]
     Indication: RHEUMATOID ARTHRITIS
     Route: 058
     Dates: start: 20110501, end: 20110801
  3. HUMIRA [Suspect]
     Route: 058
     Dates: start: 20110101
  4. UNKNOWN MEDICATIONS [Concomitant]
     Indication: PRODUCT USED FOR UNKNOWN INDICATION
  5. BIOFENAC [Concomitant]
     Indication: PAIN
     Dosage: IN AM
     Route: 048

REACTIONS (3)
  - RETINAL HAEMORRHAGE [None]
  - VISION BLURRED [None]
  - INJECTION SITE PRURITUS [None]
